FAERS Safety Report 5526569-1 (Version None)
Quarter: 2007Q4

REPORT INFORMATION
  Report Type: 
  Country: None (occurrence: None)
  Receive Date: 20071121
  Receipt Date: 20071121
  Transmission Date: 20080405
  Serious: No
  Sender: FDA-Public Use
  Company Number: None

PATIENT
  Sex: Male
  Weight: 123.3784 kg

DRUGS (2)
  1. METOPROLOL SUCCINATE [Suspect]
     Indication: SYNCOPE VASOVAGAL
     Dosage: 50MG  1 BID  PO
     Route: 048
     Dates: start: 20070916
  2. METOPROLOL SUCCINATE [Suspect]
     Indication: SYNCOPE VASOVAGAL
     Dosage: 50MG  1 BID  PO
     Route: 048
     Dates: start: 20071013

REACTIONS (3)
  - FEELING ABNORMAL [None]
  - LOSS OF CONSCIOUSNESS [None]
  - PHARMACEUTICAL PRODUCT COMPLAINT [None]
